FAERS Safety Report 5059221-X (Version None)
Quarter: 2006Q3

REPORT INFORMATION
  Report Type: 
  Country: None (occurrence: None)
  Receive Date: 20060718
  Receipt Date: 20060705
  Transmission Date: 20061208
  Serious: Yes (Other)
  Sender: FDA-Public Use
  Company Number: 2006083859

PATIENT
  Age: 53 Year
  Sex: Male

DRUGS (15)
  1. UNASYN [Suspect]
     Indication: DRUG USE FOR UNKNOWN INDICATION
     Dosage: 6 GRAM, INTRAVENOUS
     Route: 042
     Dates: start: 20060630, end: 20060703
  2. ASPIRIN [Concomitant]
  3. FAMOTIDINE [Concomitant]
  4. LUDIOMIL [Concomitant]
  5. AMITRIPTYLINE HCL [Concomitant]
  6. ZONISAMIDE [Concomitant]
  7. KETAS (IBUDILAST) [Concomitant]
  8. CLONAZEPAM [Concomitant]
  9. ASPARA K (ASPARTATE POTASSIUM) [Concomitant]
  10. MAGNESIUM OXIDE (MAGNESIUM OXIDE) [Concomitant]
  11. PURSENNID (SENNA LEAF) [Concomitant]
  12. HYALEIN (HYALURONATE SODIUM) [Concomitant]
  13. OZAGREL SODIUM (OZAGREL SODIUM) [Concomitant]
  14. AMINOFLUID (AMINO ACIDS NOS, ELECTROLYTES NOS, GLUCOSE) [Concomitant]
  15. DEPAKENE [Concomitant]

REACTIONS (1)
  - THROMBOCYTOPENIA [None]
